FAERS Safety Report 17276883 (Version 5)
Quarter: 2022Q1

REPORT INFORMATION
  Report Type: Spontaneous
  Country: US (occurrence: US)
  Receive Date: 20200116
  Receipt Date: 20220216
  Transmission Date: 20220424
  Serious: Yes (Other)
  Sender: FDA-Public Use
  Company Number: US-PFIZER INC-2020021358

PATIENT
  Age: 65 Year
  Sex: Female

DRUGS (1)
  1. XELJANZ XR [Suspect]
     Active Substance: TOFACITINIB CITRATE
     Indication: Rheumatoid arthritis
     Dosage: 11 MG, DAILY
     Route: 048

REACTIONS (7)
  - Pain [Unknown]
  - Joint stiffness [Not Recovered/Not Resolved]
  - Condition aggravated [Unknown]
  - Arthralgia [Not Recovered/Not Resolved]
  - Joint ankylosis [Unknown]
  - Drug ineffective [Unknown]
  - Product prescribing error [Unknown]
